FAERS Safety Report 7475918-6 (Version None)
Quarter: 2011Q2

REPORT INFORMATION
  Report Type: 
  Country: None (occurrence: None)
  Receive Date: 20110512
  Receipt Date: 20110502
  Transmission Date: 20111010
  Serious: Yes (Hospitalization, Other)
  Sender: FDA-Public Use
  Company Number: PHEH2006US10880

PATIENT
  Sex: Male

DRUGS (14)
  1. AREDIA [Suspect]
  2. KLONOPIN [Concomitant]
     Dosage: .25 MG, QD
     Route: 048
  3. FLEXERIL [Concomitant]
  4. CYTOXAN [Concomitant]
  5. THALOMID [Concomitant]
     Dosage: 150 MG, QHS
  6. LISINOPRIL [Concomitant]
  7. HYDROCHLOROTHIAZIDE [Concomitant]
  8. REVLIMID [Concomitant]
     Indication: MULTIPLE MYELOMA
     Route: 048
  9. ZANTAC [Concomitant]
  10. DOXEPIN [Concomitant]
     Dosage: 25 MG, QHS
     Route: 048
  11. NEUPOGEN [Concomitant]
  12. ZOMETA [Suspect]
  13. BACTRIM [Concomitant]
  14. ATENOLOL [Concomitant]

REACTIONS (66)
  - PERONEAL NERVE PALSY [None]
  - PATHOLOGICAL FRACTURE [None]
  - ANXIETY [None]
  - BONE LESION [None]
  - NEOPLASM MALIGNANT [None]
  - ABDOMINAL PAIN [None]
  - INTERVERTEBRAL DISC SPACE NARROWING [None]
  - INCREASED TENDENCY TO BRUISE [None]
  - MULTIPLE MYELOMA [None]
  - BONE SWELLING [None]
  - MUSCULOSKELETAL CHEST PAIN [None]
  - TONGUE DISORDER [None]
  - PARAESTHESIA [None]
  - ESCHERICHIA TEST POSITIVE [None]
  - OSTEOPENIA [None]
  - TINEA VERSICOLOUR [None]
  - HORDEOLUM [None]
  - HYPERLIPIDAEMIA [None]
  - PLASMACYTOMA [None]
  - METASTASES TO BONE [None]
  - GENERAL PHYSICAL HEALTH DETERIORATION [None]
  - HYPOAESTHESIA [None]
  - DERMATITIS [None]
  - NEUROPATHY PERIPHERAL [None]
  - BONE PAIN [None]
  - COLITIS [None]
  - HYPOKALAEMIA [None]
  - FACIAL PAIN [None]
  - METASTASIS [None]
  - OSTEOMYELITIS [None]
  - SECONDARY SEQUESTRUM [None]
  - EXOSTOSIS [None]
  - ANIMAL SCRATCH [None]
  - LACERATION [None]
  - ARTHRALGIA [None]
  - ACCIDENT [None]
  - BASAL CELL CARCINOMA [None]
  - OSTEONECROSIS OF JAW [None]
  - IMPAIRED HEALING [None]
  - GINGIVAL INFECTION [None]
  - GINGIVAL EROSION [None]
  - ACNE [None]
  - FALL [None]
  - MUSCLE SPASMS [None]
  - NIGHT SWEATS [None]
  - OPEN WOUND [None]
  - PAIN IN JAW [None]
  - PAIN IN EXTREMITY [None]
  - LEUKOPLAKIA [None]
  - UPPER RESPIRATORY TRACT INFECTION [None]
  - ABSCESS ORAL [None]
  - RECTAL HAEMORRHAGE [None]
  - MAJOR DEPRESSION [None]
  - SINUSITIS [None]
  - NECK PAIN [None]
  - PALPITATIONS [None]
  - DIARRHOEA HAEMORRHAGIC [None]
  - FOLLICULITIS [None]
  - NEURODERMATITIS [None]
  - PLEURITIC PAIN [None]
  - FUNGAL SKIN INFECTION [None]
  - INSOMNIA [None]
  - DECREASED INTEREST [None]
  - CLOSTRIDIUM TEST POSITIVE [None]
  - DYSTHYMIC DISORDER [None]
  - SCROTAL CYST [None]
